FAERS Safety Report 7992071-0 (Version None)
Quarter: 2011Q4

REPORT INFORMATION
  Report Type: 
  Country: None (occurrence: None)
  Receive Date: 20111219
  Receipt Date: 20110920
  Transmission Date: 20120403
  Serious: No
  Sender: FDA-Public Use
  Company Number: US-ASTRAZENECA-2011SE31569

PATIENT
  Age: 60 Year
  Sex: Female

DRUGS (4)
  1. CRESTOR [Suspect]
     Route: 048
  2. CRESTOR [Suspect]
     Route: 048
  3. CRESTOR [Suspect]
     Route: 048
  4. CRESTOR [Suspect]
     Route: 048

REACTIONS (6)
  - PNEUMONIA [None]
  - MUSCULAR WEAKNESS [None]
  - WRONG TECHNIQUE IN DRUG USAGE PROCESS [None]
  - GAIT DISTURBANCE [None]
  - PAIN IN EXTREMITY [None]
  - MUSCLE SPASMS [None]
